FAERS Safety Report 9791590 (Version 2)
Quarter: 2014Q1

REPORT INFORMATION
  Report Type: Spontaneous
  Country: US (occurrence: US)
  Receive Date: 20140101
  Receipt Date: 20140109
  Transmission Date: 20141002
  Serious: Yes (Death, Other)
  Sender: FDA-Public Use
  Company Number: US-ROCHE-1324899

PATIENT
  Age: 62 Year
  Sex: Male
  Weight: 113.95 kg

DRUGS (6)
  1. GAZYVA [Suspect]
     Indication: CHRONIC LYMPHOCYTIC LEUKAEMIA
     Route: 042
     Dates: start: 20131218, end: 20131218
  2. GAZYVA [Suspect]
     Route: 042
     Dates: start: 20131219, end: 20131219
  3. ACYCLOVIR [Concomitant]
     Route: 048
     Dates: start: 20131212
  4. FLUCONAZOLE [Concomitant]
     Route: 048
     Dates: start: 20131217
  5. ALLOPURINOL [Concomitant]
     Route: 048
  6. AMBIEN [Concomitant]
     Route: 048

REACTIONS (8)
  - Febrile neutropenia [Fatal]
  - Atrial fibrillation [Fatal]
  - Hypotension [Fatal]
  - Hypoxia [Fatal]
  - Flank pain [Fatal]
  - Sepsis [Fatal]
  - Pyrexia [Unknown]
  - Dyspnoea [Unknown]
